FAERS Safety Report 20802397 (Version 1)
Quarter: 2022Q2

REPORT INFORMATION
  Report Type: Spontaneous
  Country: US (occurrence: None)
  Receive Date: 20220506
  Receipt Date: 20220506
  Transmission Date: 20220720
  Serious: Yes (Other)
  Sender: FDA-Public Use
  Company Number: None

PATIENT
  Age: 36 Year
  Sex: Male
  Weight: 82.1 kg

DRUGS (2)
  1. PRECEDEX [Suspect]
     Active Substance: DEXMEDETOMIDINE HYDROCHLORIDE
     Dosage: OTHER FREQUENCY : CONTINUOUS IV;?
     Route: 041
     Dates: start: 20220505, end: 20220505
  2. MICAFUNGIN [Suspect]
     Active Substance: MICAFUNGIN
     Dosage: FREQUENCY : DAILY
     Route: 042
     Dates: start: 20220503, end: 20220505

REACTIONS (1)
  - Pyrexia [None]

NARRATIVE: CASE EVENT DATE: 20220505
